FAERS Safety Report 7085959-9 (Version None)
Quarter: 2010Q4

REPORT INFORMATION
  Report Type: 
  Country: None (occurrence: None)
  Receive Date: 20101105
  Receipt Date: 20101021
  Transmission Date: 20110411
  Serious: Yes (Death, Hospitalization)
  Sender: FDA-Public Use
  Company Number: NL-GENENTECH-308884

PATIENT
  Sex: Male
  Weight: 78 kg

DRUGS (6)
  1. RITUXIMAB [Suspect]
     Indication: B-CELL LYMPHOMA
     Dosage: 750 MG, UNK
     Route: 042
     Dates: start: 20100209
  2. BUSULFAN [Suspect]
     Indication: B-CELL LYMPHOMA
     Dosage: 280 MG, UNK
     Route: 042
     Dates: start: 20100330
  3. CYCLOPHOSPHAMIDE [Suspect]
     Indication: B-CELL LYMPHOMA
     Dosage: 4080 MG, UNK
     Route: 042
     Dates: start: 20100403
  4. DEXAMETHASONE [Suspect]
     Indication: B-CELL LYMPHOMA
     Dosage: 40 MG, UNK
     Route: 042
     Dates: start: 20100205
  5. CISPLATIN [Suspect]
     Indication: B-CELL LYMPHOMA
     Dosage: 200 MG, UNK
     Route: 042
     Dates: start: 20100205
  6. CYTARABINE [Suspect]
     Indication: B-CELL LYMPHOMA
     Dosage: 8 G, UNK
     Route: 042
     Dates: start: 20100206

REACTIONS (1)
  - LYMPHOMA [None]
